FAERS Safety Report 12849114 (Version 1)
Quarter: 2016Q4

REPORT INFORMATION
  Report Type: Report from Study
  Country: RO (occurrence: RO)
  Receive Date: 20161014
  Receipt Date: 20161014
  Transmission Date: 20170207
  Serious: Yes (Hospitalization)
  Sender: FDA-Public Use
  Company Number: RO-B.I. PHARMACEUTICALS,INC./RIDGEFIELD-2016-BI-065929

PATIENT
  Age: 62 Year
  Sex: Male

DRUGS (7)
  1. COMETA [Concomitant]
     Indication: METASTASES TO BONE
     Route: 042
     Dates: start: 20150416
  2. GILOTRIF [Suspect]
     Active Substance: AFATINIB
     Indication: NON-SMALL CELL LUNG CANCER
     Route: 048
     Dates: start: 20160717
  3. LORATADINE. [Concomitant]
     Active Substance: LORATADINE
     Indication: RASH
     Route: 048
     Dates: start: 20160707
  4. DIPROGETA [Concomitant]
     Indication: RASH
     Route: 061
     Dates: start: 20160707
  5. ATODERM [Concomitant]
     Indication: RASH
     Route: 061
     Dates: start: 20160707
  6. NIOSMECTINE [Suspect]
     Active Substance: MONTMORILLONITE
     Indication: DIARRHOEA
     Route: 048
     Dates: start: 20150728
  7. DOXICYCLINE /00055701/ [Suspect]
     Active Substance: DOXYCYCLINE
     Indication: RASH
     Route: 048
     Dates: start: 20150706

REACTIONS (3)
  - Haematoma [None]
  - Hemiparesis [Recovered/Resolved]
  - Epilepsy [Recovered/Resolved]

NARRATIVE: CASE EVENT DATE: 20160922
